FAERS Safety Report 5126676-1 (Version None)
Quarter: 2006Q4

REPORT INFORMATION
  Report Type: 
  Country: None (occurrence: None)
  Receive Date: 20061012
  Receipt Date: 20061012
  Transmission Date: 20070319
  Serious: Yes (Hospitalization)
  Sender: FDA-Public Use
  Company Number: None

PATIENT
  Age: 81 Year
  Sex: Male
  Weight: 88.4514 kg

DRUGS (2)
  1. AVASTIN [Suspect]
     Indication: RECTAL CANCER
     Dosage: 440MG  Q 2 WKS   IV
     Route: 042
     Dates: start: 20060925
  2. FLUOROURACIL [Suspect]
     Indication: RECTAL CANCER
     Dosage: 850MG  Q 28 DAYS   IV
     Route: 042
     Dates: start: 20060925

REACTIONS (2)
  - HYPERTENSIVE ENCEPHALOPATHY [None]
  - LACUNAR INFARCTION [None]
